FAERS Safety Report 18971299 (Version 1)
Quarter: 2021Q1

REPORT INFORMATION
  Report Type: Spontaneous
  Country: US (occurrence: US)
  Receive Date: 20210305
  Receipt Date: 20210305
  Transmission Date: 20210420
  Serious: Yes (Hospitalization, Other)
  Sender: FDA-Public Use
  Company Number: US-SCIEGEN-2021SCILIT00215

PATIENT
  Age: 65 Year
  Sex: Male

DRUGS (6)
  1. IMMUNOGLOBULIN [IMMUNOGLOBULINS NOS] [Interacting]
     Active Substance: IMMUNE GLOBULIN NOS
     Indication: MYOSITIS
     Dosage: G/KG
     Route: 042
  2. DURVALUMAB. [Suspect]
     Active Substance: DURVALUMAB
     Indication: NON-SMALL CELL LUNG CANCER
     Route: 065
  3. PREDNISONE. [Interacting]
     Active Substance: PREDNISONE
     Indication: MYOSITIS
     Route: 048
  4. ATORVASTATIN CALCIUM. [Suspect]
     Active Substance: ATORVASTATIN CALCIUM
     Indication: HYPERLIPIDAEMIA
     Route: 065
  5. ROSUVASTATIN TABLETS [Suspect]
     Active Substance: ROSUVASTATIN
     Indication: HYPERLIPIDAEMIA
     Route: 065
  6. METHYLPREDNISOLONE [METHYLPREDNISOLONE ACEPONATE] [Interacting]
     Active Substance: METHYLPREDNISOLONE ACEPONATE
     Indication: MYOSITIS
     Route: 042

REACTIONS (4)
  - Myocarditis [Recovered/Resolved]
  - Myopathy [Recovered/Resolved]
  - Drug intolerance [Recovered/Resolved]
  - Myositis [Recovered/Resolved]
